FAERS Safety Report 7498686-0 (Version None)
Quarter: 2011Q2

REPORT INFORMATION
  Report Type: 
  Country: None (occurrence: None)
  Receive Date: 20110524
  Receipt Date: 20110510
  Transmission Date: 20111010
  Serious: Yes (Other)
  Sender: FDA-Public Use
  Company Number: CA-JNJFOC-20110505382

PATIENT
  Sex: Female
  Weight: 56.1 kg

DRUGS (4)
  1. NEURONTIN [Concomitant]
  2. REMICADE [Suspect]
     Indication: CROHN'S DISEASE
     Dosage: 35 INFUSIONS TO DATE
     Route: 042
  3. CIPRO [Concomitant]
  4. AZATHIOPRINE [Concomitant]

REACTIONS (2)
  - ABDOMINAL PAIN UPPER [None]
  - VOMITING [None]
